FAERS Safety Report 6058484-1 (Version None)
Quarter: 2009Q1

REPORT INFORMATION
  Report Type: 
  Country: None (occurrence: None)
  Receive Date: 20090130
  Receipt Date: 20090121
  Transmission Date: 20090719
  Serious: Yes (Other)
  Sender: FDA-Public Use
  Company Number: PHHY2009DE02325

PATIENT
  Age: 64 Year
  Sex: Female

DRUGS (3)
  1. ZOMETA [Suspect]
     Dosage: 4 MG
  2. PAMIDRONATE DISODIUM [Suspect]
     Dosage: 90 MG
     Route: 042
  3. ARIMIDEX [Suspect]
     Indication: ENDOCRINE DISORDER
     Dosage: UNK
     Dates: start: 20080901

REACTIONS (2)
  - IMPAIRED HEALING [None]
  - OSTEONECROSIS [None]
